FAERS Safety Report 8846173 (Version 2)
Quarter: 2013Q1

REPORT INFORMATION
  Report Type: Report from Study
  Country: US (occurrence: US)
  Receive Date: 20121017
  Receipt Date: 20130128
  Transmission Date: 20140127
  Serious: Yes (Other)
  Sender: FDA-Public Use
  Company Number: US-ACTELION-A-NJ2012-64259

PATIENT
  Age: 31 Year
  Sex: Female

DRUGS (3)
  1. TRACLEER [Suspect]
     Indication: PULMONARY ARTERIAL HYPERTENSION
     Dosage: UNK
     Route: 048
  2. REVATIO [Concomitant]
  3. TYVASO [Concomitant]

REACTIONS (4)
  - Pulmonary function test decreased [Unknown]
  - Pulmonary arterial pressure increased [Recovering/Resolving]
  - Malaise [Unknown]
  - Fatigue [Unknown]
